FAERS Safety Report 8475949-3 (Version None)
Quarter: 2012Q2

REPORT INFORMATION
  Report Type: 
  Country: None (occurrence: None)
  Receive Date: 20120621
  Receipt Date: 20120611
  Transmission Date: 20120825
  Serious: Yes (Hospitalization)
  Sender: FDA-Public Use
  Company Number: 2012SP032106

PATIENT
  Age: 24 Year
  Sex: Female
  Weight: 52 kg

DRUGS (1)
  1. DESOGESTREL AND ETHINYL ESTRADIOL [Suspect]
     Indication: CONTRACEPTION
     Dosage: QD;PO
     Route: 048
     Dates: start: 20090101, end: 20120527

REACTIONS (5)
  - BURNING SENSATION [None]
  - UNSTABLE FOETAL LIE [None]
  - PREGNANCY ON ORAL CONTRACEPTIVE [None]
  - UTERINE PAIN [None]
  - URINARY TRACT INFECTION [None]
